FAERS Safety Report 14745553 (Version 3)
Quarter: 2019Q1

REPORT INFORMATION
  Report Type: Spontaneous
  Country: US (occurrence: US)
  Receive Date: 20180411
  Receipt Date: 20190204
  Transmission Date: 20190417
  Serious: No
  Sender: FDA-Public Use
  Company Number: US-CYCLE PHARMACEUTICALS LTD-2018-CYC-000001

PATIENT
  Age: 20 Year
  Sex: Female

DRUGS (3)
  1. PRENATAL                           /00231801/ [Concomitant]
     Active Substance: VITAMINS
  2. NITISINONE [Suspect]
     Active Substance: NITISINONE
     Dosage: 100 MG, QD
     Route: 048
     Dates: start: 20180317
  3. NITISINONE [Suspect]
     Active Substance: NITISINONE
     Indication: TYROSINAEMIA
     Dosage: 100 MG, QD
     Route: 048
     Dates: start: 20180317

REACTIONS (2)
  - Exposure during pregnancy [Unknown]
  - Intentional product misuse [Unknown]

NARRATIVE: CASE EVENT DATE: 20180319
